FAERS Safety Report 5315708-3 (Version None)
Quarter: 2007Q2

REPORT INFORMATION
  Report Type: 
  Country: None (occurrence: None)
  Receive Date: 20070430
  Receipt Date: 20070430
  Transmission Date: 20071010
  Serious: No
  Sender: FDA-Public Use
  Company Number: None

PATIENT
  Sex: Male
  Weight: 192.7787 kg

DRUGS (2)
  1. MAXIPIME [Suspect]
     Indication: CELLULITIS
     Dosage: 1GM  EVERY 12 HOURS  PICC LINE
     Dates: start: 20070421, end: 20070424
  2. VANCOMYCIN [Suspect]
     Dosage: 1500MG  EVERY 12 HOURS  PICC LINE

REACTIONS (1)
  - RASH GENERALISED [None]
